FAERS Safety Report 16756132 (Version 1)
Quarter: 2019Q3

REPORT INFORMATION
  Report Type: Spontaneous
  Country: BE (occurrence: JP)
  Receive Date: 20190829
  Receipt Date: 20190829
  Transmission Date: 20191005
  Serious: Yes (Hospitalization)
  Sender: FDA-Public Use
  Company Number: BE-TEVA-2019-BE-1098038

PATIENT
  Age: 54 Year
  Sex: Female

DRUGS (3)
  1. CETIRIZINE [Suspect]
     Active Substance: CETIRIZINE HYDROCHLORIDE
     Indication: RHINITIS ALLERGIC
     Dosage: DAILY DOSE: 10MILLIGRAM
     Route: 048
     Dates: start: 19990223, end: 19990305
  2. FLAVIN ADENINE DINUCLEOTIDE [Suspect]
     Active Substance: FLAVIN ADENINE DINUCLEOTIDE
     Indication: RHINITIS ALLERGIC
     Dosage: DAILY DOSE: 10MILLIGRAM
     Route: 048
     Dates: start: 19990305, end: 19990305
  3. PYRIDOXAL PHOSPHATE [Suspect]
     Active Substance: PYRIDOXAL PHOSPHATE
     Indication: RHINITIS ALLERGIC
     Dosage: DAILY DOSE: 20MILLIGRAM
     Route: 048
     Dates: start: 19990305, end: 19990305

REACTIONS (5)
  - Shock [Unknown]
  - Rash [Unknown]
  - Malaise [Unknown]
  - Pruritus [Unknown]
  - Nausea [Unknown]

NARRATIVE: CASE EVENT DATE: 1999
